FAERS Safety Report 21843880 (Version 3)
Quarter: 2023Q1

REPORT INFORMATION
  Report Type: Report from Study
  Country: GB (occurrence: GB)
  Receive Date: 20230110
  Receipt Date: 20230120
  Transmission Date: 20230418
  Serious: Yes (Other)
  Sender: FDA-Public Use
  Company Number: GB-002147023-NVSC2023GB001847

PATIENT
  Age: 51 Year
  Sex: Male
  Weight: 87.3 kg

DRUGS (18)
  1. DABRAFENIB [Suspect]
     Active Substance: DABRAFENIB
     Indication: Colorectal cancer
     Dosage: 300 MG
     Route: 065
     Dates: start: 20221108
  2. TRAMETINIB [Suspect]
     Active Substance: TRAMETINIB
     Indication: Colorectal cancer
     Dosage: 2 MG
     Route: 065
     Dates: start: 20221108
  3. BATOPROTAFIB [Suspect]
     Active Substance: BATOPROTAFIB
     Indication: Colorectal cancer
     Dosage: 20 MG
     Route: 065
     Dates: start: 20221108
  4. CHLORAMPHENICOL [Concomitant]
     Active Substance: CHLORAMPHENICOL
     Indication: Conjunctivitis
     Dosage: 1 APPLICATION, QID
     Route: 061
     Dates: start: 20221214
  5. COCODAMOL [Concomitant]
     Active Substance: ACETAMINOPHEN\CODEINE PHOSPHATE
     Indication: Arthralgia
     Dosage: 30/500 MG, BID
     Route: 048
     Dates: start: 2020
  6. MORPHINE SULFATE [Concomitant]
     Active Substance: MORPHINE SULFATE
     Indication: Abdominal pain
     Dosage: 5 ML, PRN
     Route: 048
     Dates: start: 20221020
  7. METOCLOPRAMIDE [Concomitant]
     Active Substance: METOCLOPRAMIDE
     Indication: Nausea
     Dosage: 10 MG, PRN
     Route: 048
     Dates: start: 20221115
  8. HYDROCORTISONE\MICONAZOLE NITRATE [Concomitant]
     Active Substance: HYDROCORTISONE\MICONAZOLE NITRATE
     Indication: Dermatitis acneiform
     Dosage: 1 APLLICATION, PRN
     Route: 061
     Dates: start: 20221121
  9. LOPERAMIDE [Concomitant]
     Active Substance: LOPERAMIDE
     Indication: Diarrhoea
     Dosage: 2 MG, PRN
     Route: 048
     Dates: start: 20221117
  10. DERMOL [Concomitant]
     Active Substance: BENZALKONIUM CHLORIDE\CHLORHEXIDINE HYDROCHLORIDE\ISOPROPYL MYRISTATE\PARAFFIN
     Indication: Cellulitis
     Dosage: 1 APPLICATION, PRN (500)
     Route: 061
     Dates: start: 20221208
  11. FLUCLOXACILLIN [Concomitant]
     Active Substance: FLUCLOXACILLIN
     Indication: Cellulitis
     Dosage: 1 UNIT, QID
     Route: 042
     Dates: start: 20221206, end: 20221208
  12. FLUCLOXACILLIN [Concomitant]
     Active Substance: FLUCLOXACILLIN
     Dosage: UNK, QID
     Route: 048
     Dates: start: 20221208
  13. FERINJECT [Concomitant]
     Active Substance: FERRIC CARBOXYMALTOSE
     Indication: Anaemia
     Dosage: 1 UNIT, ONCE
     Route: 042
     Dates: start: 20221208, end: 20221208
  14. NAPROXEN [Concomitant]
     Active Substance: NAPROXEN
     Indication: Arthralgia
     Dosage: 500 MG, BID
     Route: 048
     Dates: start: 2020, end: 20221208
  15. MST [Concomitant]
     Indication: Abdominal pain
     Dosage: 5 MG, BID (SLOW RELEASE)
     Route: 048
     Dates: start: 20221031, end: 20221213
  16. OMEPRAZOLE [Concomitant]
     Active Substance: OMEPRAZOLE
     Indication: Nausea
     Dosage: 20 MG, BID
     Route: 048
     Dates: start: 20221115, end: 20221208
  17. MAGNESIUM [Concomitant]
     Active Substance: MAGNESIUM
     Indication: Blood magnesium decreased
     Dosage: 1 TABLET, BID
     Route: 048
     Dates: start: 20221118, end: 20221122
  18. METFORMIN [Concomitant]
     Active Substance: METFORMIN HYDROCHLORIDE
     Indication: Type 2 diabetes mellitus
     Dosage: 1000 MG, BID
     Route: 048

REACTIONS (1)
  - Ophthalmic herpes simplex [Recovered/Resolved]

NARRATIVE: CASE EVENT DATE: 20221222
